FAERS Safety Report 8846674 (Version 3)
Quarter: 2013Q1

REPORT INFORMATION
  Report Type: Spontaneous
  Country: DE (occurrence: DE)
  Receive Date: 20121017
  Receipt Date: 20130226
  Transmission Date: 20140127
  Serious: Yes (Life-Threatening, Hospitalization, Other)
  Sender: FDA-Public Use
  Company Number: DE-ELI_LILLY_AND_COMPANY-DE201210004254

PATIENT
  Sex: Male

DRUGS (17)
  1. ALIMTA [Suspect]
     Indication: NON-SMALL CELL LUNG CANCER
     Dosage: 500 MG/M2, UNK
     Route: 042
     Dates: end: 20121005
  2. CISPLATIN [Concomitant]
     Indication: NON-SMALL CELL LUNG CANCER
  3. FOLIC ACID [Concomitant]
  4. VITAMIN B12 [Concomitant]
  5. ZOMETA [Concomitant]
     Dosage: 4 MG, OTHER
  6. ERYTHROPOETIN [Concomitant]
     Dosage: 40000 DF, WEEKLY (1/W)
     Route: 058
  7. ASS [Concomitant]
     Dosage: 100 DF, QD
  8. BISOPROLOL [Concomitant]
     Dosage: 5 MG, BID
  9. CYMBALTA [Concomitant]
     Dosage: 60 MG, QD
  10. ALLOPURINOL [Concomitant]
     Dosage: 300 MG, QD
  11. TOREM [Concomitant]
     Dosage: 10 MG, QD
  12. PANTOZAL [Concomitant]
     Dosage: 40 MG, QD
  13. NOVAMINSULFON [Concomitant]
     Dosage: 30 GTT, UNK
  14. LAXOBERAL [Concomitant]
     Dosage: UNK, PRN
  15. RAMIPRIL [Concomitant]
     Dosage: 2.5 MG, BID
  16. SIMVASTATIN [Concomitant]
     Dosage: 20 MG, QD
  17. INSULIN [Concomitant]

REACTIONS (11)
  - Dyspnoea [Unknown]
  - Skin disorder [Unknown]
  - Pneumonia [Unknown]
  - Mucosal inflammation [Recovered/Resolved]
  - Renal failure [Not Recovered/Not Resolved]
  - Pancytopenia [Not Recovered/Not Resolved]
  - Erythema [Unknown]
  - General physical health deterioration [Unknown]
  - Dehydration [Unknown]
  - Constipation [Unknown]
  - Bone marrow failure [Unknown]
